FAERS Safety Report 5421539-6 (Version None)
Quarter: 2007Q3

REPORT INFORMATION
  Report Type: 
  Country: None (occurrence: None)
  Receive Date: 20070726
  Receipt Date: 20070305
  Transmission Date: 20080115
  Serious: No
  Sender: FDA-Public Use
  Company Number: US200703001099

PATIENT
  Sex: Female

DRUGS (4)
  1. FORTEO [Suspect]
     Indication: OSTEOPOROSIS
     Dates: start: 20061001
  2. FORTEO PEN (TERIPARATIDE) PEN, DISPOSABLE [Concomitant]
  3. CALCIUM CARBONATE (CALCIUM CARBONATE) [Concomitant]
  4. ERGOCALCIFEROL (ERGOCALCIFEROL) [Concomitant]

REACTIONS (3)
  - BACK PAIN [None]
  - PAIN IN EXTREMITY [None]
  - SCIATICA [None]
